FAERS Safety Report 7722902-0 (Version None)
Quarter: 2011Q3

REPORT INFORMATION
  Report Type: 
  Country: None (occurrence: None)
  Receive Date: 20110901
  Receipt Date: 20110825
  Transmission Date: 20111222
  Serious: No
  Sender: FDA-Public Use
  Company Number: US-BIOGENIDEC-2011BI033093

PATIENT
  Age: 24 Year
  Sex: Female

DRUGS (2)
  1. TYSABRI [Suspect]
     Route: 042
     Dates: start: 20110421, end: 20110518
  2. TYSABRI [Suspect]
     Indication: MULTIPLE SCLEROSIS
     Route: 042
     Dates: start: 20110824

REACTIONS (5)
  - HYPOAESTHESIA [None]
  - PALPITATIONS [None]
  - WHEEZING [None]
  - CHEST DISCOMFORT [None]
  - DIZZINESS [None]
